FAERS Safety Report 7326510-5 (Version None)
Quarter: 2011Q1

REPORT INFORMATION
  Report Type: 
  Country: None (occurrence: None)
  Receive Date: 20110302
  Receipt Date: 20110223
  Transmission Date: 20110831
  Serious: Yes (Hospitalization)
  Sender: FDA-Public Use
  Company Number: NL-MEDIMMUNE-MEDI-0012742

PATIENT
  Sex: Male
  Weight: 8.67 kg

DRUGS (2)
  1. SYNAGIS [Suspect]
     Route: 030
     Dates: start: 20100908, end: 20110124
  2. ANTIBIOTICS [Concomitant]
     Dates: start: 20110101

REACTIONS (6)
  - ERYTHEMA [None]
  - BLOOD PRESSURE DECREASED [None]
  - CRYING [None]
  - MUSCULAR WEAKNESS [None]
  - APATHY [None]
  - BODY TEMPERATURE INCREASED [None]
